FAERS Safety Report 7955069-4 (Version None)
Quarter: 2011Q4

REPORT INFORMATION
  Report Type: 
  Country: None (occurrence: None)
  Receive Date: 20111202
  Receipt Date: 20111128
  Transmission Date: 20120403
  Serious: Yes (Other)
  Sender: FDA-Public Use
  Company Number: US-ABBOTT-11P-163-0871549-00

PATIENT
  Sex: Male
  Weight: 86.26 kg

DRUGS (1)
  1. NIASPAN [Suspect]
     Indication: HIGH DENSITY LIPOPROTEIN DECREASED
     Dates: start: 20111102, end: 20111103

REACTIONS (6)
  - PRESYNCOPE [None]
  - DIARRHOEA [None]
  - BLOOD GLUCOSE INCREASED [None]
  - FALL [None]
  - ATRIAL FIBRILLATION [None]
  - FLUSHING [None]
